FAERS Safety Report 10076567 (Version 3)
Quarter: 2014Q4

REPORT INFORMATION
  Report Type: Spontaneous
  Country: US (occurrence: US)
  Receive Date: 20140414
  Receipt Date: 20141112
  Transmission Date: 20150528
  Serious: No
  Sender: FDA-Public Use
  Company Number: US-009507513-1404USA006806

PATIENT
  Sex: Male
  Weight: 113.38 kg

DRUGS (3)
  1. IBUPROFEN. [Concomitant]
     Active Substance: IBUPROFEN
     Indication: PAIN
     Dosage: UNK, PRN
     Route: 048
     Dates: start: 2005
  2. AMBIEN [Concomitant]
     Active Substance: ZOLPIDEM TARTRATE
     Indication: INSOMNIA
     Dosage: UNK, PRN
     Route: 048
     Dates: start: 2005
  3. PROPECIA [Suspect]
     Active Substance: FINASTERIDE
     Indication: ANDROGENETIC ALOPECIA
     Dosage: 1 MG, UNK
     Route: 048
     Dates: start: 200805, end: 201105

REACTIONS (22)
  - Loss of libido [Unknown]
  - Anaemia [Unknown]
  - Hyperlipidaemia [Unknown]
  - Neck pain [Unknown]
  - Sexual dysfunction [Not Recovered/Not Resolved]
  - Rhinitis allergic [Unknown]
  - Abnormal loss of weight [Unknown]
  - Irritable bowel syndrome [Unknown]
  - Exposure to toxic agent [Unknown]
  - Benign prostatic hyperplasia [Unknown]
  - Drug hypersensitivity [Unknown]
  - Carpal tunnel syndrome [Unknown]
  - Anxiety disorder due to a general medical condition [Unknown]
  - Cognitive disorder [Not Recovered/Not Resolved]
  - Erectile dysfunction [Unknown]
  - Semen volume decreased [Unknown]
  - Metabolic syndrome [Unknown]
  - Dermatitis contact [Unknown]
  - Dermatitis allergic [Unknown]
  - Prostatomegaly [Unknown]
  - Sleep apnoea syndrome [Unknown]
  - Asthma [Unknown]

NARRATIVE: CASE EVENT DATE: 2009
